FAERS Safety Report 7359323-9 (Version None)
Quarter: 2011Q1

REPORT INFORMATION
  Report Type: 
  Country: None (occurrence: None)
  Receive Date: 20110317
  Receipt Date: 20091027
  Transmission Date: 20110831
  Serious: No
  Sender: FDA-Public Use
  Company Number: US-PFIZER INC-2009260388

PATIENT
  Sex: Male

DRUGS (6)
  1. ALPHAGAN [Concomitant]
  2. NORVASC [Suspect]
     Indication: HYPERTENSION
     Dosage: 5 MG, 1X/DAY
     Route: 048
  3. COSOPT [Concomitant]
  4. ACETAZOLAMIDE [Concomitant]
  5. PILOCARPINE [Concomitant]
  6. METHAZOLAMIDE [Concomitant]

REACTIONS (1)
  - RASH MACULAR [None]
